FAERS Safety Report 5010016-2 (Version None)
Quarter: 2006Q2

REPORT INFORMATION
  Report Type: 
  Country: None (occurrence: None)
  Receive Date: 20060510
  Receipt Date: 20060503
  Transmission Date: 20061013
  Serious: Yes (Hospitalization)
  Sender: FDA-Public Use
  Company Number: 200610151

PATIENT
  Age: 15 Year
  Sex: Female

DRUGS (6)
  1. SANDOGLOBULIN [Suspect]
     Indication: ACUTE LYMPHOCYTIC LEUKAEMIA
     Dosage: 30 G DAILY IV
     Route: 042
     Dates: start: 20060222, end: 20060222
  2. AMIKLIN [Concomitant]
  3. RIVOTRIL [Concomitant]
  4. SANDIMMUNE [Concomitant]
  5. VANCOMYCIN [Concomitant]
  6. GLEEVEC [Concomitant]

REACTIONS (4)
  - COUGH [None]
  - DERMATITIS ALLERGIC [None]
  - DIARRHOEA [None]
  - PYREXIA [None]
